FAERS Safety Report 6005506-X (Version None)
Quarter: 2008Q4

REPORT INFORMATION
  Report Type: 
  Country: None (occurrence: None)
  Receive Date: 20081217
  Receipt Date: 20080716
  Transmission Date: 20090506
  Serious: No
  Sender: FDA-Public Use
  Company Number: A0737961A

PATIENT
  Age: 28 Year
  Sex: Male

DRUGS (11)
  1. LEXIVA [Suspect]
     Indication: HIV INFECTION
     Route: 048
     Dates: start: 20080709
  2. REQUIP [Suspect]
     Indication: RESTLESS LEGS SYNDROME
     Dosage: 3MG AT NIGHT
     Route: 048
     Dates: start: 20070101
  3. CYMBALTA [Concomitant]
  4. LUNESTA [Concomitant]
  5. KLONOPIN [Concomitant]
  6. REQUIP [Concomitant]
  7. SKELAXIN [Concomitant]
  8. PRINIVIL [Concomitant]
  9. IBUPROFEN [Concomitant]
  10. PANASE [Concomitant]
  11. VERAMYST [Concomitant]

REACTIONS (3)
  - DRUG INEFFECTIVE [None]
  - INSOMNIA [None]
  - RESTLESS LEGS SYNDROME [None]
